FAERS Safety Report 20952000 (Version 1)
Quarter: 2022Q2

REPORT INFORMATION
  Report Type: Spontaneous
  Country: US (occurrence: None)
  Receive Date: 20220611
  Receipt Date: 20220611
  Transmission Date: 20220720
  Serious: Yes (Other)
  Sender: FDA-Public Use
  Company Number: None

PATIENT
  Age: 33 Year
  Sex: Male
  Weight: 76.5 kg

DRUGS (4)
  1. ARIPIPRAZOLE [Suspect]
     Active Substance: ARIPIPRAZOLE
     Indication: Schizophrenia
     Dosage: OTHER STRENGTH : INJECTION;?FREQUENCY : MONTHLY;?OTHER ROUTE : BUTTOCKS INJECTION;?
     Route: 050
     Dates: start: 20190601, end: 20210601
  2. METHADONE [Concomitant]
     Active Substance: METHADONE HYDROCHLORIDE
  3. GABAPENTIN [Concomitant]
     Active Substance: GABAPENTIN
  4. WELLBUTRIN [Concomitant]
     Active Substance: BUPROPION HYDROCHLORIDE

REACTIONS (4)
  - Impulsive behaviour [None]
  - Delusion of theft [None]
  - Disease progression [None]
  - Legal problem [None]

NARRATIVE: CASE EVENT DATE: 20200101
